FAERS Safety Report 5583301-3 (Version None)
Quarter: 2008Q1

REPORT INFORMATION
  Report Type: 
  Country: None (occurrence: None)
  Receive Date: 20080107
  Receipt Date: 20061108
  Transmission Date: 20080703
  Serious: No
  Sender: FDA-Public Use
  Company Number: A0626736A

PATIENT
  Age: 11 Year
  Sex: Male

DRUGS (2)
  1. TAGAMET [Suspect]
     Dosage: 1200MG TWICE PER DAY
     Route: 065
  2. CLINORIL [Concomitant]

REACTIONS (1)
  - THERAPEUTIC RESPONSE UNEXPECTED [None]
